FAERS Safety Report 8956897 (Version 1)
Quarter: 2012Q4

REPORT INFORMATION
  Report Type: 
  Country: JP (occurrence: JP)
  Receive Date: 20121211
  Receipt Date: 20121211
  Transmission Date: 20130627
  Serious: Yes (Hospitalization)
  Sender: FDA-Public Use
  Company Number: JP-ELI_LILLY_AND_COMPANY-JP201211008870

PATIENT
  Age: 83 Year
  Sex: Female

DRUGS (5)
  1. FORTEO [Suspect]
     Indication: OSTEOPOROSIS
     Dosage: 20 ug, qd
     Route: 058
     Dates: start: 20121119, end: 20121127
  2. CEROCRAL [Concomitant]
     Dosage: UNK
  3. NIVADIL [Concomitant]
     Dosage: UNK
  4. BAYASPIRIN [Concomitant]
     Dosage: UNK
  5. PRAVASTAN [Concomitant]
     Dosage: UNK

REACTIONS (1)
  - Convulsion [Recovering/Resolving]
